FAERS Safety Report 9144785 (Version 1)
Quarter: 2013Q1

REPORT INFORMATION
  Report Type: Report from Study
  Country: DE (occurrence: DE)
  Receive Date: 20130306
  Receipt Date: 20130306
  Transmission Date: 20140127
  Serious: No
  Sender: FDA-Public Use
  Company Number: PHHY2012DE127987

PATIENT
  Sex: Female
  Weight: 58 kg

DRUGS (3)
  1. AMN107 [Suspect]
     Indication: CHRONIC MYELOID LEUKAEMIA
     Dosage: 600 MG, PER DAY
     Route: 048
     Dates: start: 20110825
  2. LORZAAR [Concomitant]
  3. CIPROBAY [Concomitant]
     Dosage: 250 MG, UNK
     Dates: start: 201111, end: 201112

REACTIONS (3)
  - Headache [Recovered/Resolved]
  - Alopecia [Recovered/Resolved]
  - Urinary tract infection [Not Recovered/Not Resolved]
